FAERS Safety Report 7624646-2 (Version None)
Quarter: 2011Q3

REPORT INFORMATION
  Report Type: 
  Country: None (occurrence: None)
  Receive Date: 20110720
  Receipt Date: 20110707
  Transmission Date: 20111222
  Serious: Yes (Hospitalization, Other)
  Sender: FDA-Public Use
  Company Number: US-ASTRAZENECA-2011SE24659

PATIENT
  Age: 60 Year
  Sex: Female

DRUGS (24)
  1. NEXIUM [Suspect]
     Indication: GASTRIC ULCER
     Route: 048
  2. NEILMED SINUS RINSE [Concomitant]
     Indication: CHRONIC SINUSITIS
  3. LORATADINE [Concomitant]
  4. PERCOCET [Concomitant]
     Indication: BACK PAIN
     Dosage: 10 MG/325 MG
  5. MUCINEX [Concomitant]
  6. FIORICET [Concomitant]
     Indication: SINUS DISORDER
  7. PERCOCET [Concomitant]
     Indication: NECK PAIN
     Dosage: 10 MG/325 MG
  8. CO Q-10 [Concomitant]
     Indication: CARDIAC DISORDER
  9. EFFEXOR XR [Concomitant]
     Indication: DEPRESSION
  10. CORAL CALCIUM [Concomitant]
     Dosage: 3/DAY
  11. ASPIRIN [Concomitant]
     Indication: CARDIAC DISORDER
  12. NAPROXEN (ALEVE) [Concomitant]
     Dosage: 220MG 2-4/DAY
  13. NEXIUM [Suspect]
     Indication: GASTRITIS
     Route: 048
  14. AMLODIPINE [Concomitant]
     Indication: HYPERTENSION
     Dosage: 10-40MG/DAY
  15. OSTEO BI-FLEX [Concomitant]
     Indication: ARTHRALGIA
     Dosage: 2/DAY
  16. ZICAM [Concomitant]
     Indication: HYPERSENSITIVITY
  17. RESVERATROL [Concomitant]
  18. ALENDRONATE SODIUM [Concomitant]
     Indication: BONE DISORDER
     Dosage: FOR 1 WEEK
  19. ZOLPIDEM [Concomitant]
     Indication: SLEEP DISORDER
  20. DIAZEPAM [Concomitant]
     Indication: STRESS
  21. FISH OIL [Concomitant]
     Indication: MEDICAL DIET
  22. COLON CLEAR FORMULA [Concomitant]
     Indication: MEDICAL DIET
  23. FIORICET [Concomitant]
     Indication: TENSION HEADACHE
  24. SIMVASTATIN [Concomitant]
     Indication: BLOOD CHOLESTEROL

REACTIONS (15)
  - SPINAL OPERATION [None]
  - HAND FRACTURE [None]
  - JOINT DISLOCATION [None]
  - MULTIPLE ALLERGIES [None]
  - SINUS OPERATION [None]
  - HERPES ZOSTER [None]
  - SCOLIOSIS [None]
  - MALAISE [None]
  - SHOULDER ARTHROPLASTY [None]
  - MENISCUS LESION [None]
  - LIGAMENT OPERATION [None]
  - ULCER [None]
  - ARTHROPATHY [None]
  - ROTATOR CUFF SYNDROME [None]
  - SINUSITIS [None]
